FAERS Safety Report 14707269 (Version 1)
Quarter: 2018Q2

REPORT INFORMATION
  Report Type: Report from Study
  Country: CN (occurrence: CN)
  Receive Date: 20180403
  Receipt Date: 20180403
  Transmission Date: 20180711
  Serious: Yes (Hospitalization, Other)
  Sender: FDA-Public Use
  Company Number: CN-ACCORD-065193

PATIENT
  Age: 8 Year
  Sex: Female

DRUGS (1)
  1. METHOTREXATE. [Suspect]
     Active Substance: METHOTREXATE
     Indication: ACUTE LYMPHOCYTIC LEUKAEMIA
     Dosage: 3 G/M2, 1ST HD-MTX PROTOCOL

REACTIONS (8)
  - Vomiting [Unknown]
  - Acute kidney injury [Recovered/Resolved]
  - Pulmonary oedema [Recovered/Resolved]
  - Abdominal pain [Unknown]
  - Anaemia [Recovered/Resolved]
  - Ileus paralytic [Recovered/Resolved]
  - Stomatitis [Recovered/Resolved]
  - Drug clearance decreased [Recovered/Resolved]
